FAERS Safety Report 8589153 (Version 3)
Quarter: 2013Q3

REPORT INFORMATION
  Report Type: Spontaneous
  Country: US (occurrence: US)
  Receive Date: 20120531
  Receipt Date: 20130813
  Transmission Date: 20140515
  Serious: Yes (Other)
  Sender: FDA-Public Use
  Company Number: US-ASTRAZENECA-2012SE32595

PATIENT
  Age: 45 Year
  Sex: Female

DRUGS (1)
  1. ZOMIG [Suspect]
     Indication: MIGRAINE
     Dosage: 2.5MG AT ONSET, REPEATE AFTER 2HRS, PRN
     Route: 048
     Dates: start: 20120501, end: 201306

REACTIONS (5)
  - Fall [Recovered/Resolved]
  - Loss of consciousness [Unknown]
  - Meniscus injury [Unknown]
  - Back injury [Unknown]
  - Headache [Not Recovered/Not Resolved]
